FAERS Safety Report 5003726-4 (Version None)
Quarter: 2006Q2

REPORT INFORMATION
  Report Type: 
  Country: None (occurrence: None)
  Receive Date: 20060515
  Receipt Date: 20060502
  Transmission Date: 20061013
  Serious: Yes (Hospitalization)
  Sender: FDA-Public Use
  Company Number: S06-FRA-01783-01

PATIENT
  Age: 39 Year
  Sex: Female

DRUGS (8)
  1. SEROPLEX (ESCITALOPRAM) [Suspect]
     Dosage: 100 MG ONCE PO
     Route: 048
  2. DI-ANTALVIC [Suspect]
  3. OXAZEPAM [Suspect]
  4. VENTOLIN [Suspect]
  5. RISPERDAL [Suspect]
  6. METHADONE HCL [Suspect]
  7. CODEINE [Suspect]
     Dosage: 2 TABLET QD
  8. ALCOHOL [Suspect]

REACTIONS (2)
  - DRUG ABUSER [None]
  - MULTIPLE DRUG OVERDOSE INTENTIONAL [None]
